FAERS Safety Report 16407044 (Version 2)
Quarter: 2019Q3

REPORT INFORMATION
  Report Type: Spontaneous
  Country: MM (occurrence: MM)
  Receive Date: 20190608
  Receipt Date: 20190716
  Transmission Date: 20191004
  Serious: Yes (Life-Threatening, Hospitalization, Other)
  Sender: FDA-Public Use
  Company Number: MM-009507513-1906MMR002509

PATIENT
  Age: 52 Year
  Sex: Female
  Weight: 37 kg

DRUGS (7)
  1. PAS [Suspect]
     Active Substance: AMINOSALICYLIC ACID
     Indication: TUBERCULOSIS
     Dosage: 4 GRAM, BID
     Route: 065
     Dates: start: 20190318, end: 20190517
  2. DELAMANID [Suspect]
     Active Substance: DELAMANID
     Indication: TUBERCULOSIS
     Dosage: 100 MILLIGRAM, BID
     Route: 065
     Dates: start: 20190318, end: 20190517
  3. BEDAQUILINE [Suspect]
     Active Substance: BEDAQUILINE
     Indication: TUBERCULOSIS
     Dosage: 200 MILLIGRAM, TID
     Route: 065
     Dates: start: 20190318, end: 20190517
  4. PYRIDOXINE [Concomitant]
     Active Substance: PYRIDOXINE
     Dosage: UNK
     Dates: start: 20190318
  5. IMIPENEM AND CILASTATIN [Suspect]
     Active Substance: CILASTATIN SODIUM\IMIPENEM
     Indication: TUBERCULOSIS
     Dosage: 1000 MILLIGRAM, BID (12 HOURLY)
     Route: 065
     Dates: start: 20190318, end: 20190517
  6. CLOFAZIMINE [Suspect]
     Active Substance: CLOFAZIMINE
     Indication: TUBERCULOSIS
     Dosage: 200 MILLIGRAM, QD
     Route: 065
     Dates: start: 20190318, end: 20190517
  7. AMOXICILLIN (+) CLAVULANATE POTASSIUM [Suspect]
     Active Substance: AMOXICILLIN\CLAVULANATE POTASSIUM
     Indication: TUBERCULOSIS
     Dosage: 625 MILLIGRAM, BID
     Route: 065
     Dates: start: 20190318, end: 20190517

REACTIONS (12)
  - Oral candidiasis [Unknown]
  - Haemoglobin decreased [Unknown]
  - Blood creatine increased [Recovering/Resolving]
  - Uraemic encephalopathy [Unknown]
  - Hypertension [Unknown]
  - Platelet count increased [Unknown]
  - Oedema peripheral [Unknown]
  - White blood cell count increased [Unknown]
  - Blood urea increased [Unknown]
  - Vomiting [Unknown]
  - Ascites [Unknown]
  - Seizure [Recovered/Resolved]

NARRATIVE: CASE EVENT DATE: 20190503
